FAERS Safety Report 21915642 (Version 2)
Quarter: 2023Q1

REPORT INFORMATION
  Report Type: Spontaneous
  Country: BE (occurrence: BE)
  Receive Date: 20230126
  Receipt Date: 20230215
  Transmission Date: 20230418
  Serious: Yes (Disabling, Other)
  Sender: FDA-Public Use
  Company Number: None

PATIENT
  Sex: Female

DRUGS (1)
  1. KEPPRA [Suspect]
     Active Substance: LEVETIRACETAM
     Indication: Epilepsy
     Dosage: SINCE A SHORT TIME

REACTIONS (7)
  - Personality disorder [Recovered/Resolved]
  - Seizure [Unknown]
  - Suicide attempt [Unknown]
  - Epilepsy [Recovered/Resolved]
  - Suicidal ideation [Recovered/Resolved]
  - Treatment noncompliance [Unknown]
  - Product dose omission in error [Unknown]
